FAERS Safety Report 9260235 (Version 1)
Quarter: 2013Q2

REPORT INFORMATION
  Report Type: Spontaneous
  Country: US (occurrence: US)
  Receive Date: 20130429
  Receipt Date: 20130429
  Transmission Date: 20140414
  Serious: Yes (Other)
  Sender: FDA-Public Use
  Company Number: US-PFIZER INC-2013132460

PATIENT
  Age: 32 Year
  Sex: Female
  Weight: 66.21 kg

DRUGS (2)
  1. CHANTIX [Suspect]
     Indication: SMOKING CESSATION THERAPY
     Dosage: 0.5 MG, 1X/DAY
     Route: 048
     Dates: start: 2012
  2. CHANTIX [Suspect]
     Dosage: UNK
     Route: 048

REACTIONS (4)
  - Hostility [Recovered/Resolved]
  - Affective disorder [Unknown]
  - Anxiety [Unknown]
  - Anger [Recovered/Resolved]
